FAERS Safety Report 7539205-X (Version None)
Quarter: 2011Q2

REPORT INFORMATION
  Report Type: 
  Country: None (occurrence: None)
  Receive Date: 20110610
  Receipt Date: 20110602
  Transmission Date: 20111010
  Serious: Yes (Hospitalization)
  Sender: FDA-Public Use
  Company Number: JP-JNJFOC-20101102973

PATIENT
  Sex: Male

DRUGS (11)
  1. SELENICA-R [Concomitant]
     Route: 048
  2. DIAZEPAM [Concomitant]
     Route: 048
  3. CEFOTIAM HYDROCHLORIDE [Suspect]
     Indication: PRODUCT USED FOR UNKNOWN INDICATION
     Route: 042
  4. VOLTAREN [Suspect]
     Indication: PRODUCT USED FOR UNKNOWN INDICATION
     Route: 048
  5. ZONISAMIDE [Concomitant]
     Route: 048
  6. MAGNESIUM OXIDE [Concomitant]
     Route: 048
  7. TOPIRAMATE [Suspect]
     Route: 048
     Dates: start: 20091104, end: 20100119
  8. PIPERACILLIN SODIUM [Suspect]
     Indication: PRODUCT USED FOR UNKNOWN INDICATION
     Route: 041
     Dates: start: 20100119, end: 20100119
  9. MYSTAN [Concomitant]
     Route: 048
  10. TOPIRAMATE [Suspect]
     Indication: EPILEPSY
     Route: 048
     Dates: start: 20091005, end: 20091103
  11. CEFAZOLIN [Suspect]
     Indication: PRODUCT USED FOR UNKNOWN INDICATION
     Route: 042

REACTIONS (3)
  - CELLULITIS [None]
  - PYREXIA [None]
  - DRUG ERUPTION [None]
